FAERS Safety Report 9530433 (Version 2)
Quarter: 2013Q4

REPORT INFORMATION
  Report Type: Spontaneous
  Country: CH (occurrence: CH)
  Receive Date: 20130918
  Receipt Date: 20131018
  Transmission Date: 20140711
  Serious: Yes (Other)
  Sender: FDA-Public Use
  Company Number: CH-009507513-1309CHE004322

PATIENT
  Age: 32 Year
  Sex: Male
  Weight: 75 kg

DRUGS (4)
  1. ISENTRESS [Suspect]
     Indication: HIV INFECTION
     Dosage: 400 MG, BID
     Route: 048
     Dates: start: 20130726, end: 2013
  2. TRUVADA [Concomitant]
     Indication: HIV INFECTION
     Dosage: 200 MG/300 MG, QD
     Route: 048
     Dates: start: 20130726
  3. L-THYROXIN [Concomitant]
     Indication: HYPOTHYROIDISM
     Dosage: 0.05 MG, QD
     Route: 048
     Dates: start: 2000
  4. CIPRALEX [Concomitant]
     Indication: DEPRESSED MOOD
     Dosage: 5 MG, QD
     Route: 048
     Dates: start: 2012

REACTIONS (1)
  - Maculopathy [Recovered/Resolved]
